FAERS Safety Report 15589287 (Version 3)
Quarter: 2019Q2

REPORT INFORMATION
  Report Type: Report from Study
  Country: US (occurrence: US)
  Receive Date: 20181106
  Receipt Date: 20190403
  Transmission Date: 20190711
  Serious: Yes (Other)
  Sender: FDA-Public Use
  Company Number: PHEH2018US046310

PATIENT
  Sex: Female

DRUGS (2)
  1. ENTRESTO [Suspect]
     Active Substance: SACUBITRIL\VALSARTAN
     Indication: PRODUCT USED FOR UNKNOWN INDICATION
     Dosage: 1 DF (SACUBITRIL 49 MG/ VALSARTAN 51 MG), UNK
     Route: 048
  2. ENTRESTO [Suspect]
     Active Substance: SACUBITRIL\VALSARTAN
     Dosage: 1 DF (SACUBITRIL 97 MG/ VALSARTAN 103 MG), UNK
     Route: 048

REACTIONS (4)
  - Ejection fraction decreased [Recovering/Resolving]
  - Palpitations [Unknown]
  - Visual impairment [Unknown]
  - Heart rate abnormal [Unknown]
